FAERS Safety Report 16986340 (Version 1)
Quarter: 2019Q4

REPORT INFORMATION
  Report Type: Spontaneous
  Country: US (occurrence: US)
  Receive Date: 20190918
  Receipt Date: 20190918
  Transmission Date: 20200122
  Serious: Yes (Hospitalization)
  Sender: FDA-Public Use
  Company Number: None

PATIENT
  Age: 87 Year
  Sex: Female

DRUGS (9)
  1. SMZ/TMP DS [Concomitant]
     Active Substance: SULFAMETHOXAZOLE\TRIMETHOPRIM
  2. FLUOXETINE [Concomitant]
     Active Substance: FLUOXETINE HYDROCHLORIDE
  3. MYRBETRIQ [Concomitant]
     Active Substance: MIRABEGRON
  4. DIGOXIN. [Concomitant]
     Active Substance: DIGOXIN
  5. QUETIAPINE. [Concomitant]
     Active Substance: QUETIAPINE
  6. METOPROLOL TAR [Concomitant]
     Active Substance: METOPROLOL TARTRATE
  7. FORTEO [Suspect]
     Active Substance: TERIPARATIDE
     Indication: PRODUCT USED FOR UNKNOWN INDICATION
     Route: 058
     Dates: start: 20180123, end: 20190917
  8. MEMANTINE. [Concomitant]
     Active Substance: MEMANTINE
  9. POT CL MICRO [Concomitant]

REACTIONS (2)
  - Head injury [None]
  - Fall [None]
